FAERS Safety Report 8473208-6 (Version None)
Quarter: 2012Q2

REPORT INFORMATION
  Report Type: 
  Country: None (occurrence: None)
  Receive Date: 20120627
  Receipt Date: 20120625
  Transmission Date: 20120825
  Serious: Yes (Other)
  Sender: FDA-Public Use
  Company Number: US-PFIZER INC-2012041041

PATIENT
  Sex: Female

DRUGS (3)
  1. XANAX [Suspect]
     Indication: ANXIETY
     Dosage: UNK
  2. ZOLOFT [Suspect]
     Indication: DEPRESSION
     Dosage: UNK
  3. ZOLOFT [Suspect]
     Indication: ANXIETY
     Dosage: 12.5 MG, 1X/DAY
     Route: 048
     Dates: end: 20110101

REACTIONS (8)
  - HYPOAESTHESIA [None]
  - LOSS OF CONSCIOUSNESS [None]
  - VOMITING [None]
  - GASTRIC PH DECREASED [None]
  - SOMNOLENCE [None]
  - BLADDER DISORDER [None]
  - EMOTIONAL POVERTY [None]
  - ANXIETY [None]
